FAERS Safety Report 23703054 (Version 3)
Quarter: 2024Q2

REPORT INFORMATION
  Report Type: Spontaneous
  Country: DE (occurrence: DE)
  Receive Date: 20240403
  Receipt Date: 20240429
  Transmission Date: 20240716
  Serious: Yes (Death, Hospitalization, Other)
  Sender: FDA-Public Use
  Company Number: DE-GILEAD-2024-0668057

PATIENT
  Age: 63 Year
  Sex: Female
  Weight: 59.8 kg

DRUGS (1)
  1. YESCARTA [Suspect]
     Active Substance: AXICABTAGENE CILOLEUCEL
     Indication: Diffuse large B-cell lymphoma
     Dosage: DOSE VIABLE CELL COUNT = 0.6 X 10^6 (ILLEGIBLE) CD19 CAR-T CELLS/KG
     Route: 042
     Dates: start: 20240314, end: 20240314

REACTIONS (7)
  - Liver disorder [Not Recovered/Not Resolved]
  - Sepsis [Unknown]
  - Leukopenia [Unknown]
  - Renal failure [Not Recovered/Not Resolved]
  - Immune effector cell-associated neurotoxicity syndrome [Recovered/Resolved]
  - Cytokine release syndrome [Recovered/Resolved]
  - Disease progression [Fatal]

NARRATIVE: CASE EVENT DATE: 20240314
